FAERS Safety Report 9482008 (Version 3)
Quarter: 2013Q3

REPORT INFORMATION
  Report Type: Spontaneous
  Country: JP (occurrence: JP)
  Receive Date: 20130828
  Receipt Date: 20130905
  Transmission Date: 20140515
  Serious: Yes (Death, Other)
  Sender: FDA-Public Use
  Company Number: JP-BAYER-2013-102606

PATIENT
  Age: 58 Year
  Sex: Male

DRUGS (4)
  1. NEXAVAR [Suspect]
     Indication: RENAL CELL CARCINOMA
     Dosage: DAILY DOSE 800 MG
     Route: 048
     Dates: start: 200808, end: 200904
  2. NEXAVAR [Suspect]
     Indication: RENAL CELL CARCINOMA
     Dosage: DAILY DOSE 800 MG
     Route: 048
     Dates: start: 201101
  3. SUNITINIB [Concomitant]
     Dosage: DAILY DOSE 50 MG
     Route: 048
     Dates: start: 2009
  4. EVEROLIMUS [Concomitant]
     Dosage: DAILY DOSE 10 MG
     Route: 048
     Dates: start: 2010

REACTIONS (4)
  - Renal cell carcinoma [Fatal]
  - Metastases to spine [None]
  - Metastases to central nervous system [None]
  - Metastases to central nervous system [None]
